FAERS Safety Report 6679998-7 (Version None)
Quarter: 2010Q2

REPORT INFORMATION
  Report Type: 
  Country: None (occurrence: None)
  Receive Date: 20100409
  Receipt Date: 20100324
  Transmission Date: 20101027
  Serious: Yes (Other)
  Sender: FDA-Public Use
  Company Number: 2010SCPR000473

PATIENT
  Age: 43 Year
  Sex: Female

DRUGS (1)
  1. CAPOTEN [Suspect]
     Indication: HYPERTENSION
     Dosage: 3 TABLETS A DAY WHILE ON 3 DAYS OF HOSPITALIZATION

REACTIONS (4)
  - BLOOD PRESSURE INADEQUATELY CONTROLLED [None]
  - CONDITION AGGRAVATED [None]
  - DRUG INEFFECTIVE [None]
  - ESSENTIAL HYPERTENSION [None]
